FAERS Safety Report 5366892-7 (Version None)
Quarter: 2007Q2

REPORT INFORMATION
  Report Type: 
  Country: None (occurrence: None)
  Receive Date: 20070622
  Receipt Date: 20061130
  Transmission Date: 20071010
  Serious: No
  Sender: FDA-Public Use
  Company Number: US-ASTRAZENECA-2006UW24396

PATIENT
  Age: 76 Year
  Sex: Female
  Weight: 61.2 kg

DRUGS (3)
  1. RHINOCORT [Suspect]
     Indication: SINUS CONGESTION
     Route: 045
  2. VYTORIN [Concomitant]
  3. GLIPIZIDE [Concomitant]

REACTIONS (2)
  - DRUG INEFFECTIVE [None]
  - RHINORRHOEA [None]
